FAERS Safety Report 15600350 (Version 2)
Quarter: 2019Q1

REPORT INFORMATION
  Report Type: Spontaneous
  Country: JP (occurrence: JP)
  Receive Date: 20181109
  Receipt Date: 20190116
  Transmission Date: 20190417
  Serious: Yes (Hospitalization)
  Sender: FDA-Public Use
  Company Number: JP-ROCHE-2213074

PATIENT
  Age: 81 Year
  Sex: Male
  Weight: 68 kg

DRUGS (7)
  1. PREDONINE [Suspect]
     Active Substance: PREDNISOLONE
     Indication: PRODUCT USED FOR UNKNOWN INDICATION
     Route: 048
     Dates: start: 20170220
  2. CARERAM [Concomitant]
     Active Substance: IGURATIMOD
     Dosage: DOSAGE IS UNCERTAIN.
     Route: 065
     Dates: start: 20151115, end: 20181101
  3. NEXIUM [Concomitant]
     Active Substance: ESOMEPRAZOLE MAGNESIUM
     Dosage: DOSAGE IS UNCERTAIN.
     Route: 065
     Dates: start: 20160603, end: 20181101
  4. ACTEMRA [Suspect]
     Active Substance: TOCILIZUMAB
     Indication: RHEUMATOID ARTHRITIS
     Route: 058
     Dates: start: 20180808, end: 20180905
  5. ACTEMRA [Suspect]
     Active Substance: TOCILIZUMAB
     Route: 058
     Dates: start: 20180906, end: 20181025
  6. LOXOPROFEN SODIUM HYDRATE [Suspect]
     Active Substance: LOXOPROFEN SODIUM DIHYDRATE
     Indication: PRODUCT USED FOR UNKNOWN INDICATION
     Route: 048
     Dates: start: 20151115, end: 20181101
  7. TENELIA [Concomitant]
     Active Substance: TENELIGLIPTIN
     Dosage: DOSAGE IS UNCERTAIN.
     Route: 065
     Dates: start: 20171016, end: 20181101

REACTIONS (3)
  - Large intestine perforation [Recovered/Resolved with Sequelae]
  - Colonic abscess [Unknown]
  - Peritonitis [Unknown]

NARRATIVE: CASE EVENT DATE: 20181101
